FAERS Safety Report 17196624 (Version 3)
Quarter: 2021Q1

REPORT INFORMATION
  Report Type: Report from Study
  Country: CO (occurrence: CO)
  Receive Date: 20191224
  Receipt Date: 20210120
  Transmission Date: 20210419
  Serious: Yes (Other)
  Sender: FDA-Public Use
  Company Number: PHHY2019CO093386

PATIENT
  Sex: Male
  Weight: 60 kg

DRUGS (2)
  1. REVOLADE [Suspect]
     Active Substance: ELTROMBOPAG OLAMINE
     Indication: IMMUNE THROMBOCYTOPENIA
     Dosage: 50 MG, QD
     Route: 048
  2. REVOLADE [Suspect]
     Active Substance: ELTROMBOPAG OLAMINE
     Dosage: 50 MG, QD
     Route: 048
     Dates: start: 201810

REACTIONS (13)
  - Hypertension [Unknown]
  - Malaise [Unknown]
  - Movement disorder [Unknown]
  - Glaucoma [Unknown]
  - Dysstasia [Unknown]
  - Diabetes mellitus [Unknown]
  - Mobility decreased [Unknown]
  - Blindness unilateral [Unknown]
  - Immune thrombocytopenia [Unknown]
  - Feeling abnormal [Unknown]
  - Condition aggravated [Unknown]
  - Rash [Unknown]
  - Fatigue [Unknown]
